FAERS Safety Report 9592095 (Version 1)
Quarter: 2013Q4

REPORT INFORMATION
  Report Type: Spontaneous
  Country: US (occurrence: US)
  Receive Date: 20131004
  Receipt Date: 20131004
  Transmission Date: 20140711
  Serious: No
  Sender: FDA-Public Use
  Company Number: US-BIOGENIDEC-2013BI093862

PATIENT
  Age: 41 Year
  Sex: Female

DRUGS (1)
  1. TYSABRI [Suspect]
     Indication: MULTIPLE SCLEROSIS
     Route: 042
     Dates: start: 20100326, end: 20130701

REACTIONS (7)
  - Gait disturbance [Recovered/Resolved]
  - General symptom [Recovered/Resolved]
  - Adverse event [Recovered/Resolved]
  - Fatigue [Recovered/Resolved]
  - Decreased activity [Recovered/Resolved]
  - Multiple sclerosis relapse [Recovered/Resolved]
  - Nasopharyngitis [Not Recovered/Not Resolved]
